FAERS Safety Report 9320566 (Version 1)
Quarter: 2013Q2

REPORT INFORMATION
  Report Type: Spontaneous
  Country: US (occurrence: US)
  Receive Date: 20130531
  Receipt Date: 20130531
  Transmission Date: 20140414
  Serious: Yes (Hospitalization)
  Sender: FDA-Public Use
  Company Number: US-LUNDBECK-DKLU1091112

PATIENT
  Age: 16 Year
  Sex: Female

DRUGS (4)
  1. SABRIL (TABLET) [Suspect]
     Indication: COMPLEX PARTIAL SEIZURES
     Dates: start: 20101008
  2. SABRIL (TABLET) [Suspect]
     Indication: GRAND MAL CONVULSION
     Dates: start: 20101008
  3. SABRIL (TABLET) [Suspect]
     Dates: start: 20111014
  4. SABRIL (TABLET) [Suspect]
     Dates: start: 20111014

REACTIONS (2)
  - Aggression [Unknown]
  - Drug dose omission [Unknown]
